FAERS Safety Report 22118711 (Version 2)
Quarter: 2023Q1

REPORT INFORMATION
  Report Type: Other
  Country: US (occurrence: None)
  Receive Date: 20230321
  Receipt Date: 20230322
  Transmission Date: 20230417
  Serious: No
  Sender: FDA-Public Use
  Company Number: US-ROCHE-3313672

PATIENT
  Age: 51 Year
  Sex: Female

DRUGS (3)
  1. OCREVUS [Suspect]
     Active Substance: OCRELIZUMAB
     Indication: Relapsing multiple sclerosis
     Dosage: ONGOING-YES?LAST DATE OF TREATMENT: 03/05/2020?DATE OF TREATMENT ADDED AS 22/SEP/2020, 05/MAR/2020 1
     Route: 042
  2. BACLOFEN [Concomitant]
     Active Substance: BACLOFEN
  3. PROVIGIL [Concomitant]
     Active Substance: MODAFINIL

REACTIONS (1)
  - COVID-19 [Recovered/Resolved]
